FAERS Safety Report 16683735 (Version 2)
Quarter: 2019Q3

REPORT INFORMATION
  Report Type: Spontaneous
  Country: CN (occurrence: CN)
  Receive Date: 20190808
  Receipt Date: 20190830
  Transmission Date: 20191004
  Serious: Yes (Other)
  Sender: FDA-Public Use
  Company Number: CN-ASTRAZENECA-2019SF12321

PATIENT
  Age: 74 Year
  Sex: Female
  Weight: 75 kg

DRUGS (2)
  1. HYPOGLYCEMIC DRUGS [Concomitant]
     Active Substance: UNSPECIFIED INGREDIENT
  2. IRESSA [Suspect]
     Active Substance: GEFITINIB
     Indication: NON-SMALL CELL LUNG CANCER
     Route: 048
     Dates: start: 201609, end: 2019

REACTIONS (3)
  - Diarrhoea [Unknown]
  - Drug resistance [Unknown]
  - Malignant neoplasm progression [Unknown]

NARRATIVE: CASE EVENT DATE: 2019
